FAERS Safety Report 7168261-6 (Version None)
Quarter: 2010Q4

REPORT INFORMATION
  Report Type: 
  Country: None (occurrence: None)
  Receive Date: 20101216
  Receipt Date: 20101126
  Transmission Date: 20110411
  Serious: Yes (Hospitalization)
  Sender: FDA-Public Use
  Company Number: JP-AMGEN-US382371

PATIENT

DRUGS (7)
  1. ENBREL [Suspect]
     Indication: RHEUMATOID ARTHRITIS
     Dosage: 25 MG, 2 TIMES/WK
     Route: 058
     Dates: start: 20090812, end: 20091211
  2. METHOTREXATE [Suspect]
     Dosage: 8 MG, QWK
     Route: 048
     Dates: start: 20090511, end: 20091216
  3. PREDNISOLONE [Concomitant]
     Dosage: 3 MG, QD
     Route: 048
     Dates: start: 20090511
  4. PYRIDOXAL PHOSPHATE [Concomitant]
     Dosage: 90 MG, QD
     Route: 048
     Dates: start: 20090812
  5. GASTROM [Concomitant]
     Dosage: 200 MG, QD
     Route: 048
     Dates: start: 20090812
  6. ISONIAZID [Concomitant]
     Dosage: 300 MG, QD
     Route: 048
     Dates: start: 20090812
  7. ETODOLAC [Concomitant]
     Dosage: 400 MG, QD
     Route: 048
     Dates: start: 20090511

REACTIONS (7)
  - CARDIAC FAILURE CONGESTIVE [None]
  - COUGH [None]
  - DECREASED APPETITE [None]
  - DYSPNOEA [None]
  - INTERSTITIAL LUNG DISEASE [None]
  - MALAISE [None]
  - PYREXIA [None]
